FAERS Safety Report 8028089-1 (Version None)
Quarter: 2012Q1

REPORT INFORMATION
  Report Type: 
  Country: None (occurrence: None)
  Receive Date: 20120104
  Receipt Date: 20111221
  Transmission Date: 20120608
  Serious: Yes (Hospitalization)
  Sender: FDA-Public Use
  Company Number: 1000026518

PATIENT
  Age: 74 Year
  Sex: Female

DRUGS (26)
  1. ADVAIR (FLUTICASONE) (FLUTICASONE) [Concomitant]
  2. PLAVIX (CLOPIDOGREL BISULFATE) (CLOPIDOGREL BISULFATE) [Concomitant]
  3. PROTONIX (PANTOPRAZOLE SODIUM SESQUIHYDRATE) (PANTOPRAZOLE SODIUM SESQ [Concomitant]
  4. LASIX [Concomitant]
  5. FISH OIL (FISH OIL) (FISH OIL) [Concomitant]
  6. MULTIVITAMINS (MULTIVITAMINS) (MULTIVITAMINS) [Concomitant]
  7. CRESTOR [Concomitant]
  8. REMERON [Concomitant]
  9. CARDIZEM [Concomitant]
  10. MAGNESIUM (MAGNESIUM) (MAGNESIUM) [Concomitant]
  11. VIIBRYD [Suspect]
     Indication: ANXIETY
     Dosage: 10 MG (10 MG,1 IN 1 D),ORAL ; 20 MG (20 MG,1 IN 1 D),ORAL ; 30 MG (30 MG,1 IN 1 D),ORAL
     Route: 048
     Dates: start: 20110801
  12. VIIBRYD [Suspect]
     Indication: DEPRESSION
     Dosage: 10 MG (10 MG,1 IN 1 D),ORAL ; 20 MG (20 MG,1 IN 1 D),ORAL ; 30 MG (30 MG,1 IN 1 D),ORAL
     Route: 048
     Dates: start: 20110801
  13. VIIBRYD [Suspect]
     Indication: ANXIETY
     Dosage: 10 MG (10 MG,1 IN 1 D),ORAL ; 20 MG (20 MG,1 IN 1 D),ORAL ; 30 MG (30 MG,1 IN 1 D),ORAL
     Route: 048
  14. VIIBRYD [Suspect]
     Indication: DEPRESSION
     Dosage: 10 MG (10 MG,1 IN 1 D),ORAL ; 20 MG (20 MG,1 IN 1 D),ORAL ; 30 MG (30 MG,1 IN 1 D),ORAL
     Route: 048
  15. ULTRAM (TRAMADOL HYDROCHLORIDE) (TRAMADOL HYDROCHLORIDE) [Concomitant]
  16. ASPIRIN [Concomitant]
  17. VIIBRYD [Suspect]
     Indication: DEPRESSION
     Dosage: 40 MG (40 MG,1 IN 1 D),ORAL ; 20 MG (20 MG,1 IN 1 D),ORAL
     Route: 048
     Dates: end: 20111101
  18. VIIBRYD [Suspect]
     Indication: ANXIETY
     Dosage: 40 MG (40 MG,1 IN 1 D),ORAL ; 20 MG (20 MG,1 IN 1 D),ORAL
     Route: 048
     Dates: end: 20111101
  19. VIIBRYD [Suspect]
     Indication: DEPRESSION
     Dosage: 40 MG (40 MG,1 IN 1 D),ORAL ; 20 MG (20 MG,1 IN 1 D),ORAL
     Route: 048
     Dates: start: 20111101
  20. VIIBRYD [Suspect]
     Indication: ANXIETY
     Dosage: 40 MG (40 MG,1 IN 1 D),ORAL ; 20 MG (20 MG,1 IN 1 D),ORAL
     Route: 048
     Dates: start: 20111101
  21. K-DUR (POTASSIUM CHLORIDE) (POTASSIUM CHLORIDE) [Concomitant]
  22. SINGULAR (MONTELUKAST SODIUM) (MONTELUKAST SODIUM) [Concomitant]
  23. NIASPAN ER (NICOTINIC ACID) (NICOTINIC ACID) [Concomitant]
  24. XANAX [Concomitant]
  25. PREDNISONE [Concomitant]
  26. CALCIUM (CALCIUM) (CALCIUM) [Concomitant]

REACTIONS (4)
  - DIARRHOEA [None]
  - BLOOD PRESSURE DECREASED [None]
  - VOMITING [None]
  - PNEUMONIA [None]
